FAERS Safety Report 19236397 (Version 1)
Quarter: 2021Q2

REPORT INFORMATION
  Report Type: Spontaneous
  Country: US (occurrence: US)
  Receive Date: 20210510
  Receipt Date: 20210510
  Transmission Date: 20210717
  Serious: Yes (Hospitalization)
  Sender: FDA-Public Use
  Company Number: US-CADILA HEALTHCARE LIMITED-US-ZYDUS-065468

PATIENT

DRUGS (3)
  1. VITAMIN D [COLECALCIFEROL] [Suspect]
     Active Substance: CHOLECALCIFEROL
     Indication: DEEP VEIN THROMBOSIS
     Dosage: 5000 INTERNATIONAL UNIT
     Route: 048
  2. WARFARIN [Suspect]
     Active Substance: WARFARIN
     Indication: DEEP VEIN THROMBOSIS
     Dosage: 5 MILLIGRAM, QD
     Route: 065
  3. CALCIPOTRIENE. [Suspect]
     Active Substance: CALCIPOTRIENE
     Indication: DEEP VEIN THROMBOSIS
     Dosage: UNK
     Route: 061

REACTIONS (1)
  - Calciphylaxis [Recovered/Resolved]
